FAERS Safety Report 11029662 (Version 1)
Quarter: 2015Q2

REPORT INFORMATION
  Report Type: Spontaneous
  Country: US (occurrence: None)
  Receive Date: 20150413
  Receipt Date: 20150413
  Transmission Date: 20150821
  Serious: Yes (Hospitalization)
  Sender: FDA-Public Use
  Company Number: None

PATIENT
  Age: 32 Year
  Sex: Female
  Weight: 81.65 kg

DRUGS (2)
  1. CHLORHEXIDINE [Suspect]
     Active Substance: CHLORHEXIDINE
     Indication: PREOPERATIVE CARE
     Dates: start: 20150331, end: 20150331
  2. CHLORHEXIDINE [Suspect]
     Active Substance: CHLORHEXIDINE
     Indication: CAESAREAN SECTION
     Dates: start: 20150331, end: 20150331

REACTIONS (4)
  - Pain [None]
  - Activities of daily living impaired [None]
  - Chemical injury [None]
  - Discomfort [None]

NARRATIVE: CASE EVENT DATE: 20150401
